FAERS Safety Report 9201726 (Version 4)
Quarter: 2013Q4

REPORT INFORMATION
  Report Type: Report from Study
  Country: CA (occurrence: CA)
  Receive Date: 20130401
  Receipt Date: 20131223
  Transmission Date: 20140711
  Serious: Yes (Hospitalization, Other)
  Sender: FDA-Public Use
  Company Number: CA-ROCHE-1143512

PATIENT
  Age: 51 Year
  Sex: Female
  Weight: 77.1 kg

DRUGS (9)
  1. ACTEMRA [Suspect]
     Indication: RHEUMATOID ARTHRITIS
     Route: 042
     Dates: start: 20120425
  2. ACTEMRA [Suspect]
     Route: 042
     Dates: start: 20120523
  3. ACTEMRA [Suspect]
     Route: 042
     Dates: start: 20130109
  4. ACTEMRA [Suspect]
     Route: 042
     Dates: start: 20130705
  5. CELEBREX [Concomitant]
  6. LORAZEPAM [Concomitant]
  7. TYLENOL [Concomitant]
  8. PREDNISONE [Concomitant]
  9. AMITRIPTYLINE [Concomitant]

REACTIONS (4)
  - Arthritis [Recovering/Resolving]
  - Arthralgia [Recovering/Resolving]
  - Foot deformity [Unknown]
  - Sinusitis [Recovered/Resolved]
